FAERS Safety Report 21842365 (Version 1)
Quarter: 2023Q1

REPORT INFORMATION
  Report Type: Spontaneous
  Country: US (occurrence: US)
  Receive Date: 20230110
  Receipt Date: 20230110
  Transmission Date: 20230417
  Serious: Yes (Other)
  Sender: FDA-Public Use
  Company Number: US-SUNOVION-2023SUN000012AA

PATIENT
  Sex: Female

DRUGS (8)
  1. APTIOM [Suspect]
     Active Substance: ESLICARBAZEPINE ACETATE
     Dosage: 400 MG, QD
     Route: 048
  2. APTIOM [Suspect]
     Active Substance: ESLICARBAZEPINE ACETATE
     Dosage: 1200 MG, QD (2 600 MG TABLETS)
     Route: 048
  3. ZONEGRAN [Concomitant]
     Active Substance: ZONISAMIDE
     Dosage: 300, BID
     Route: 065
  4. ONFI [Concomitant]
     Active Substance: CLOBAZAM
     Dosage: 20/30
     Route: 065
  5. KEPPRA [Concomitant]
     Active Substance: LEVETIRACETAM
     Dosage: 1500/1000/1500
     Route: 048
  6. NAYZILAM [Concomitant]
     Active Substance: MIDAZOLAM
     Dosage: 5 MG/0.1 ML
     Route: 045
  7. CLOBAZAM [Concomitant]
     Active Substance: CLOBAZAM
     Dosage: 10 MG TABLETS 2 TABLETS QAM 3 TABLETS QHS
     Route: 048
  8. JENCYCLA [Concomitant]
     Active Substance: NORETHINDRONE
     Dosage: 0.35 MG, QD
     Route: 048

REACTIONS (2)
  - Seizure [Recovered/Resolved]
  - Dizziness [Recovered/Resolved]

NARRATIVE: CASE EVENT DATE: 20220101
